FAERS Safety Report 13426491 (Version 2)
Quarter: 2017Q2

REPORT INFORMATION
  Report Type: Spontaneous
  Country: GB (occurrence: GB)
  Receive Date: 20170411
  Receipt Date: 20170505
  Transmission Date: 20170830
  Serious: Yes (Hospitalization)
  Sender: FDA-Public Use
  Company Number: PHFR2017GB001621

PATIENT
  Age: 11 Year
  Sex: Female
  Weight: 3.5 kg

DRUGS (2)
  1. EXJADE [Suspect]
     Active Substance: DEFERASIROX
     Dosage: HALF DOSE
     Route: 048
  2. EXJADE [Suspect]
     Active Substance: DEFERASIROX
     Indication: THALASSAEMIA BETA
     Dosage: 22 MG/KG, UNK
     Route: 048
     Dates: start: 20161012, end: 20170225

REACTIONS (11)
  - Agitation [Unknown]
  - Ammonia increased [Unknown]
  - Metabolic acidosis [Unknown]
  - Blood sodium increased [Unknown]
  - Toxicity to various agents [Unknown]
  - Blood chloride increased [Unknown]
  - Coma scale abnormal [Unknown]
  - Body mass index decreased [Unknown]
  - Vomiting [Unknown]
  - Restlessness [Unknown]
  - Hallucination [Unknown]

NARRATIVE: CASE EVENT DATE: 20170225
